FAERS Safety Report 15237548 (Version 1)
Quarter: 2018Q3

REPORT INFORMATION
  Report Type: Report from Study
  Country: DE (occurrence: DE)
  Receive Date: 20180803
  Receipt Date: 20180803
  Transmission Date: 20181010
  Serious: Yes (Life-Threatening, Hospitalization, Other)
  Sender: FDA-Public Use
  Company Number: DE-ROCHE-2062047

PATIENT
  Sex: Male
  Weight: 80 kg

DRUGS (47)
  1. RITUXIMAB. [Suspect]
     Active Substance: RITUXIMAB
     Route: 058
     Dates: start: 20180207, end: 20180207
  2. VINCRISTINE [Suspect]
     Active Substance: VINCRISTINE
     Indication: POST TRANSPLANT LYMPHOPROLIFERATIVE DISORDER
     Dosage: CHOP AT DAYS 50, 92 AND 134 (CYCLOPHOSPHAMIDE IV 750 MG/M2, ADRIAMYCINE IV 50 MG/M2, VINCRISTINE IV
     Route: 042
     Dates: start: 20180115, end: 20180115
  3. PARACETAMOL [Concomitant]
     Active Substance: ACETAMINOPHEN
     Route: 048
     Dates: start: 20180115, end: 20180115
  4. MESNA. [Concomitant]
     Active Substance: MESNA
     Route: 042
     Dates: start: 20180115, end: 20180115
  5. RESONIUM [Concomitant]
     Active Substance: SODIUM POLYSTYRENE SULFONATE
     Route: 065
     Dates: start: 20180404, end: 20180410
  6. CHOLECALCIFEROL [Concomitant]
     Active Substance: CHOLECALCIFEROL
     Dosage: 1000 IE
     Route: 065
     Dates: start: 20180404
  7. RITUXIMAB. [Suspect]
     Active Substance: RITUXIMAB
     Route: 058
     Dates: start: 20171204, end: 20171204
  8. RITUXIMAB. [Suspect]
     Active Substance: RITUXIMAB
     Route: 058
     Dates: start: 20180115, end: 20180115
  9. CYCLOPHOSPHAMIDE. [Suspect]
     Active Substance: CYCLOPHOSPHAMIDE
     Indication: POST TRANSPLANT LYMPHOPROLIFERATIVE DISORDER
     Dosage: CHOP AT DAYS 50, 92 AND 134 (CYCLOPHOSPHAMIDE IV 750 MG/M2, ADRIAMYCINE IV 50 MG/M2, VINCRISTINE IV
     Route: 042
     Dates: start: 20180115, end: 20180115
  10. OXALIPLATIN. [Suspect]
     Active Substance: OXALIPLATIN
     Route: 042
     Dates: start: 20180207, end: 20180207
  11. ITRACONAZOLE. [Concomitant]
     Active Substance: ITRACONAZOLE
     Route: 065
     Dates: start: 20180404
  12. NACL .9% [Concomitant]
     Route: 065
     Dates: start: 20180213
  13. NACL .9% [Concomitant]
     Route: 065
     Dates: start: 20180404, end: 20180516
  14. FASTURTEC [Concomitant]
     Active Substance: RASBURICASE
     Route: 065
     Dates: start: 20180213
  15. PRAVASTATIN. [Concomitant]
     Active Substance: PRAVASTATIN
     Route: 065
     Dates: start: 20180404
  16. BICANORM [Concomitant]
     Active Substance: SODIUM BICARBONATE
     Route: 065
     Dates: start: 20180707
  17. TAZORAC [Concomitant]
     Active Substance: TAZAROTENE
     Route: 065
     Dates: start: 20180406
  18. LASIX [Concomitant]
     Active Substance: FUROSEMIDE
     Route: 065
     Dates: start: 20180404
  19. RITUXIMAB. [Suspect]
     Active Substance: RITUXIMAB
     Indication: POST TRANSPLANT LYMPHOPROLIFERATIVE DISORDER
     Route: 042
     Dates: start: 20180406
  20. PARACETAMOL [Concomitant]
     Active Substance: ACETAMINOPHEN
     Route: 065
     Dates: start: 20180404
  21. ONDANSETRON [Concomitant]
     Active Substance: ONDANSETRON
     Route: 048
     Dates: start: 20180115, end: 20180115
  22. ASPIRIN. [Concomitant]
     Active Substance: ASPIRIN
  23. PANTOPRAZOLE SODIUM. [Concomitant]
     Active Substance: PANTOPRAZOLE SODIUM
     Route: 065
     Dates: start: 20180404
  24. DEXAMETHASONE. [Suspect]
     Active Substance: DEXAMETHASONE
     Indication: POST TRANSPLANT LYMPHOPROLIFERATIVE DISORDER
     Dosage: DHAOX AT DAYS 71, 113 AND 155 (OXALIPLATIN (130 MG/M2, DAY 1) AND CYTARABINE (ARA?C, 2X 1000 MG/M2 A
     Route: 048
     Dates: start: 20180207
  25. CYTARABINE. [Suspect]
     Active Substance: CYTARABINE
     Indication: POST TRANSPLANT LYMPHOPROLIFERATIVE DISORDER
     Dosage: DHAOX AT DAYS 71, 113 AND 155 (OXALIPLATIN (130 MG/M2, DAY 1) AND CYTARABINE (ARA?C, 2X 1000 MG/M2 A
     Route: 065
     Dates: start: 20180208
  26. CYCLOSPORIN A [Concomitant]
     Active Substance: CYCLOSPORINE
  27. PREDNISONE. [Concomitant]
     Active Substance: PREDNISONE
     Route: 065
     Dates: start: 20180404
  28. PEGFILGRASTIM [Suspect]
     Active Substance: PEGFILGRASTIM
     Indication: POST TRANSPLANT LYMPHOPROLIFERATIVE DISORDER
     Route: 065
     Dates: start: 20180210, end: 20180210
  29. AZATHIOPRIN [Concomitant]
     Active Substance: AZATHIOPRINE
  30. FENISTIL (GERMANY) [Concomitant]
     Route: 048
     Dates: start: 20180115, end: 20180115
  31. NACL .9% [Concomitant]
     Route: 065
     Dates: start: 20180115, end: 20180115
  32. RAMIPRIL. [Concomitant]
     Active Substance: RAMIPRIL
     Route: 065
     Dates: start: 20180404
  33. SODIUM BICARBONATE. [Concomitant]
     Active Substance: SODIUM BICARBONATE
     Route: 065
     Dates: end: 20180429
  34. HMF FORTE [Concomitant]
     Dosage: 2.072
     Route: 065
     Dates: start: 20180404
  35. RITUXIMAB. [Suspect]
     Active Substance: RITUXIMAB
     Route: 058
     Dates: start: 20171127, end: 20171127
  36. CYTARABINE. [Suspect]
     Active Substance: CYTARABINE
     Route: 042
     Dates: start: 20180208, end: 20180208
  37. OXALIPLATIN. [Suspect]
     Active Substance: OXALIPLATIN
     Indication: POST TRANSPLANT LYMPHOPROLIFERATIVE DISORDER
     Dosage: DHAOX AT DAYS 71, 113 AND 155 (OXALIPLATIN (130 MG/M2, DAY 1) AND CYTARABINE (ARA?C, 2X 1000 MG/M2 A
     Route: 065
     Dates: start: 20180207
  38. MYCOPHENOLATE MOFETIL. [Concomitant]
     Active Substance: MYCOPHENOLATE MOFETIL
     Route: 065
     Dates: start: 20180406
  39. PROGRAF [Concomitant]
     Active Substance: TACROLIMUS\TACROLIMUS ANHYDROUS
  40. COTRIM FORTE [Concomitant]
     Active Substance: SULFAMETHOXAZOLE\TRIMETHOPRIM
     Route: 065
     Dates: start: 20180404
  41. PREDNISOLONE. [Suspect]
     Active Substance: PREDNISOLONE
     Indication: POST TRANSPLANT LYMPHOPROLIFERATIVE DISORDER
     Dosage: CHOP AT DAYS 50, 92 AND 134 (CYCLOPHOSPHAMIDE IV 750 MG/M2, ADRIAMYCINE IV 50 MG/M2, VINCRISTINE IV
     Route: 048
     Dates: start: 20180115, end: 20180115
  42. DEXAMETHASONE. [Suspect]
     Active Substance: DEXAMETHASONE
     Route: 048
     Dates: start: 20180207, end: 20180207
  43. RANITIDINE. [Concomitant]
     Active Substance: RANITIDINE
     Route: 048
     Dates: start: 20180115, end: 20180115
  44. ACYCLOVIR. [Concomitant]
     Active Substance: ACYCLOVIR
     Route: 065
     Dates: start: 20180404
  45. RITUXIMAB. [Suspect]
     Active Substance: RITUXIMAB
     Indication: POST TRANSPLANT LYMPHOPROLIFERATIVE DISORDER
     Route: 058
     Dates: start: 20171120, end: 20171120
  46. DOXORUBICIN [Suspect]
     Active Substance: DOXORUBICIN
     Indication: POST TRANSPLANT LYMPHOPROLIFERATIVE DISORDER
     Dosage: CHOP AT DAYS 50, 92 AND 134 (CYCLOPHOSPHAMIDE IV 750 MG/M2, ADRIAMYCINE IV 50 MG/M2, VINCRISTINE IV
     Route: 042
     Dates: start: 20180115, end: 20180115
  47. PSYLLIUM [Concomitant]
     Active Substance: PLANTAGO SEED
     Route: 065
     Dates: start: 20180404, end: 20180517

REACTIONS (3)
  - Large intestine perforation [Unknown]
  - Acute kidney injury [Recovered/Resolved]
  - Pneumonia [Recovered/Resolved]

NARRATIVE: CASE EVENT DATE: 20180120
